FAERS Safety Report 5193074-4 (Version None)
Quarter: 2006Q4

REPORT INFORMATION
  Report Type: 
  Country: None (occurrence: None)
  Receive Date: 20061228
  Receipt Date: 20060403
  Transmission Date: 20070319
  Serious: No
  Sender: FDA-Public Use
  Company Number: US-GLAXOSMITHKLINE-A0600907A

PATIENT
  Sex: Male

DRUGS (1)
  1. AVODART [Suspect]
     Indication: PROSTATIC DISORDER
     Route: 048

REACTIONS (2)
  - HAIR GROWTH ABNORMAL [None]
  - THERAPEUTIC RESPONSE UNEXPECTED [None]
